FAERS Safety Report 23576437 (Version 1)
Quarter: 2024Q1

REPORT INFORMATION
  Report Type: Spontaneous
  Country: US (occurrence: US)
  Receive Date: 20240228
  Receipt Date: 20240228
  Transmission Date: 20240409
  Serious: No
  Sender: FDA-Public Use
  Company Number: US-UPSHER-SMITH LABORATORIES, LLC-2023USL00506

PATIENT
  Sex: Male
  Weight: 35.692 kg

DRUGS (10)
  1. MYORISAN [Suspect]
     Active Substance: ISOTRETINOIN
     Indication: Acne
     Dosage: UNK
     Route: 048
     Dates: start: 20221024, end: 20221128
  2. MYORISAN [Suspect]
     Active Substance: ISOTRETINOIN
     Dosage: 30 MG, 1X/DAY TAKEN IN CONJUNCTION WITH 80 MG, 1X/DAY
     Dates: start: 20221230, end: 20230130
  3. MYORISAN [Suspect]
     Active Substance: ISOTRETINOIN
     Dosage: 30 MG, 1X/DAY TAKEN IN CONJUNCTION WITH 80 MG, 1X/DAY
     Route: 048
     Dates: start: 20230301, end: 20230509
  4. MYORISAN [Suspect]
     Active Substance: ISOTRETINOIN
     Indication: Acne
     Dosage: UNK
     Dates: start: 20221129, end: 20221229
  5. MYORISAN [Suspect]
     Active Substance: ISOTRETINOIN
     Indication: Acne
     Dosage: UNK
     Route: 048
     Dates: start: 20221129, end: 20221229
  6. MYORISAN [Suspect]
     Active Substance: ISOTRETINOIN
     Dosage: 80 MG, 1X/DAY TAKEN IN CONJUNCTION WITH 30 MG, 1X/DAY
     Route: 048
     Dates: start: 20221230, end: 20230130
  7. MYORISAN [Suspect]
     Active Substance: ISOTRETINOIN
     Dosage: 80 MG, 1X/DAY TAKEN IN CONJUNCTION WITH 30 MG, 1X/DAY
     Route: 048
     Dates: start: 20230301, end: 20230509
  8. ISOTRETINOIN [Suspect]
     Active Substance: ISOTRETINOIN
     Indication: Acne
     Dosage: UNK
     Route: 048
     Dates: start: 20220920, end: 20221023
  9. ISOTRETINOIN [Suspect]
     Active Substance: ISOTRETINOIN
     Dosage: 30 MG, 1X/DAY TAKEN IN CONJUNCTION WITH 80 MG, 1X/DAY
     Dates: start: 20230131, end: 20230228
  10. CLARAVIS [Suspect]
     Active Substance: ISOTRETINOIN
     Indication: Acne
     Dosage: 80 MG, 1X/DAY TAKEN IN CONJUNCTION WITH 30 MG, 1X/DAY
     Route: 048
     Dates: start: 20230131, end: 20230228

REACTIONS (12)
  - Eye irritation [Unknown]
  - Appetite disorder [Unknown]
  - Chapped lips [Unknown]
  - Alopecia [Unknown]
  - Lip dry [Unknown]
  - Nasal dryness [Unknown]
  - Dry eye [Unknown]
  - Nausea [Unknown]
  - Headache [Unknown]
  - Dry skin [Unknown]
  - Sunburn [Unknown]
  - Epistaxis [Unknown]
